FAERS Safety Report 17269992 (Version 3)
Quarter: 2022Q1

REPORT INFORMATION
  Report Type: Spontaneous
  Country: US (occurrence: US)
  Receive Date: 20200114
  Receipt Date: 20220210
  Transmission Date: 20220424
  Serious: No
  Sender: FDA-Public Use
  Company Number: US-PFIZER INC-2020016357

PATIENT
  Age: 65 Year
  Sex: Female

DRUGS (4)
  1. IBRANCE [Suspect]
     Active Substance: PALBOCICLIB
     Indication: Breast cancer female
     Dosage: 125 MG
     Dates: start: 20191104
  2. IBRANCE [Suspect]
     Active Substance: PALBOCICLIB
     Dosage: 125 MG, CYCLIC (ON DAYS 1 TO 21 OF 28 DAYS CYCLE)
     Route: 048
     Dates: start: 201912
  3. IBRANCE [Suspect]
     Active Substance: PALBOCICLIB
     Dosage: 125 MG
     Dates: start: 20200701
  4. IBRANCE [Suspect]
     Active Substance: PALBOCICLIB
     Dosage: 125 MG
     Dates: start: 20200831

REACTIONS (10)
  - Product dose omission issue [Unknown]
  - Illness [Unknown]
  - Asthenia [Unknown]
  - Fatigue [Unknown]
  - Feeling drunk [Unknown]
  - Diarrhoea [Unknown]
  - Dizziness [Unknown]
  - Balance disorder [Unknown]
  - Malaise [Unknown]
  - Somnolence [Recovered/Resolved with Sequelae]

NARRATIVE: CASE EVENT DATE: 20210101
